FAERS Safety Report 6171646-8 (Version None)
Quarter: 2009Q2

REPORT INFORMATION
  Report Type: 
  Country: None (occurrence: None)
  Receive Date: 20090424
  Receipt Date: 20081205
  Transmission Date: 20091009
  Serious: No
  Sender: FDA-Public Use
  Company Number: SPV1-2008-02717

PATIENT
  Age: 7 Year
  Sex: Male

DRUGS (5)
  1. VYVANSE [Suspect]
     Indication: ATTENTION DEFICIT/HYPERACTIVITY DISORDER
     Dosage: 30 MG, 1X/DAY; QD, ORAL
     Route: 048
     Dates: start: 20081204
  2. STRATTERA [Concomitant]
  3. TENEX [Concomitant]
  4. SEROQUEL [Concomitant]
  5. PALIPERIDONE (PALIPERIDONE) [Concomitant]

REACTIONS (2)
  - DYSPNOEA [None]
  - RASH MACULAR [None]
